FAERS Safety Report 22148875 (Version 1)
Quarter: 2023Q1

REPORT INFORMATION
  Report Type: Spontaneous
  Country: US (occurrence: US)
  Receive Date: 20230328
  Receipt Date: 20230328
  Transmission Date: 20230418
  Serious: Yes (Hospitalization)
  Sender: FDA-Public Use
  Company Number: US-CTI BIOPHARMA-2022US03258

PATIENT

DRUGS (1)
  1. VONJO [Suspect]
     Active Substance: PACRITINIB
     Indication: Myeloproliferative neoplasm
     Dosage: 200 MG, BID
     Route: 048
     Dates: start: 20221124

REACTIONS (5)
  - Haemoglobin decreased [Unknown]
  - Transfusion [Unknown]
  - Dehydration [Unknown]
  - Taste disorder [Unknown]
  - Product dose omission issue [Unknown]
